FAERS Safety Report 6527352-0 (Version None)
Quarter: 2009Q4

REPORT INFORMATION
  Report Type: 
  Country: None (occurrence: None)
  Receive Date: 20091229
  Receipt Date: 20091222
  Transmission Date: 20100525
  Serious: Yes (Death)
  Sender: FDA-Public Use
  Company Number: OMPQ-NO-0912S-1044

PATIENT
  Age: 56 Year
  Sex: Male
  Weight: 80 kg

DRUGS (1)
  1. OMNIPAQUE 350 [Suspect]
     Indication: DISEASE RECURRENCE
     Dosage: 80 ML, SINGLE DOSE, IV
     Route: 042
     Dates: start: 20091130, end: 20091130

REACTIONS (1)
  - CARDIO-RESPIRATORY ARREST [None]
